FAERS Safety Report 12473946 (Version 2)
Quarter: 2016Q2

REPORT INFORMATION
  Report Type: Spontaneous
  Country: IT (occurrence: IT)
  Receive Date: 20160616
  Receipt Date: 20160620
  Transmission Date: 20160815
  Serious: Yes (Disabling)
  Sender: FDA-Public Use
  Company Number: IT-ELI_LILLY_AND_COMPANY-IT201606002225

PATIENT
  Sex: Female

DRUGS (3)
  1. ZYPREXA [Suspect]
     Active Substance: OLANZAPINE
     Dosage: 5 MG, UNKNOWN
     Route: 065
     Dates: start: 1999
  2. ZYPREXA [Suspect]
     Active Substance: OLANZAPINE
     Indication: PRODUCT USED FOR UNKNOWN INDICATION
     Dosage: 10 MG, UNKNOWN
     Route: 065
     Dates: start: 1999
  3. HYPERICUM                          /01166801/ [Concomitant]
     Active Substance: HYPERICUM PERFORATUM
     Dosage: UNK, UNKNOWN
     Route: 065

REACTIONS (9)
  - Insomnia [Unknown]
  - Fatigue [Unknown]
  - Blood cholesterol increased [Unknown]
  - Somnolence [Unknown]
  - Anxiety [Unknown]
  - Muscle rigidity [Unknown]
  - Blood triglycerides increased [Unknown]
  - Myalgia [Unknown]
  - Asthenia [Unknown]
